FAERS Safety Report 24332971 (Version 1)
Quarter: 2024Q3

REPORT INFORMATION
  Report Type: Spontaneous
  Country: US (occurrence: None)
  Receive Date: 20240917
  Receipt Date: 20240917
  Transmission Date: 20241016
  Serious: Yes (Death)
  Sender: Public
  Company Number: None

PATIENT
  Sex: Male
  Weight: 108.1 kg

DRUGS (15)
  1. REVLIMID [Suspect]
     Active Substance: LENALIDOMIDE
     Indication: Plasma cell myeloma
     Dosage: FREQUENCY : DAILY;?
     Route: 048
     Dates: start: 20240818
  2. DEXAMETHASONE [Concomitant]
     Active Substance: DEXAMETHASONE
  3. MONTELUKAST [Concomitant]
     Active Substance: MONTELUKAST SODIUM
  4. ELIQUIS [Concomitant]
     Active Substance: APIXABAN
  5. ZOVIRAX [Concomitant]
     Active Substance: ACYCLOVIR
  6. GABAPENTIN [Concomitant]
     Active Substance: GABAPENTIN
  7. ASCORBIC ACID\BIOTIN\CALCIUM PANTOTHENATE\CYANOCOBALAMIN\FOLIC ACID\NI [Concomitant]
     Active Substance: ASCORBIC ACID\BIOTIN\CALCIUM PANTOTHENATE\CYANOCOBALAMIN\FOLIC ACID\NIACINAMIDE\PYRIDOXINE HYDROCHLO
  8. OXYCONTIN [Concomitant]
     Active Substance: OXYCODONE HYDROCHLORIDE
  9. OXYCODONE [Concomitant]
     Active Substance: OXYCODONE
  10. CYCLOPHOSPHAMIDE [Concomitant]
     Active Substance: CYCLOPHOSPHAMIDE
  11. BACLOFEN [Concomitant]
     Active Substance: BACLOFEN
  12. COMPAZINE [Concomitant]
     Active Substance: PROCHLORPERAZINE MALEATE
  13. NIFEDIPINE [Concomitant]
     Active Substance: NIFEDIPINE
  14. ATORVASTATIN [Concomitant]
     Active Substance: ATORVASTATIN
  15. ALLOPURINOL [Concomitant]

REACTIONS (1)
  - Death [None]
